FAERS Safety Report 17940045 (Version 3)
Quarter: 2020Q3

REPORT INFORMATION
  Report Type: Spontaneous
  Country: US (occurrence: US)
  Receive Date: 20200624
  Receipt Date: 20200804
  Transmission Date: 20201103
  Serious: Yes (Other)
  Sender: FDA-Public Use
  Company Number: US-PFIZER INC-2020002738

PATIENT
  Age: 68 Year
  Sex: Female
  Weight: 65.31 kg

DRUGS (2)
  1. ARTHROTEC [Suspect]
     Active Substance: DICLOFENAC SODIUM\MISOPROSTOL
     Indication: BACK PAIN
  2. ARTHROTEC [Suspect]
     Active Substance: DICLOFENAC SODIUM\MISOPROSTOL
     Indication: ARTHRITIS
     Dosage: 1 DF, AS NEEDED (2 TIMES A DAY)
     Route: 048
     Dates: start: 2009

REACTIONS (3)
  - Deafness [Unknown]
  - Drug dependence [Unknown]
  - Product prescribing error [Unknown]
